FAERS Safety Report 7759686-6 (Version None)
Quarter: 2011Q3

REPORT INFORMATION
  Report Type: 
  Country: None (occurrence: None)
  Receive Date: 20110919
  Receipt Date: 20110916
  Transmission Date: 20111222
  Serious: Yes (Other)
  Sender: FDA-Public Use
  Company Number: US-AMGEN-USASP2011045631

PATIENT
  Age: 65 Year
  Sex: Female

DRUGS (1)
  1. ENBREL [Suspect]
     Indication: RHEUMATOID ARTHRITIS
     Dosage: 50 MG, QWK
     Dates: start: 20000310, end: 20110729

REACTIONS (5)
  - WRIST SURGERY [None]
  - PARAESTHESIA [None]
  - PAIN IN EXTREMITY [None]
  - FALL [None]
  - WRIST FRACTURE [None]
